FAERS Safety Report 10271334 (Version 1)
Quarter: 2014Q1

REPORT INFORMATION
  Report Type: Spontaneous
  Country: US (occurrence: None)
  Receive Date: 20140306
  Receipt Date: 20140306
  Transmission Date: 20141002
  Serious: Yes (Other)
  Sender: FDA-Public Use
  Company Number: 163-21880-13081686

PATIENT
  Sex: Female
  Weight: 79.4 kg

DRUGS (10)
  1. REVLIMID [Suspect]
     Indication: PLASMA CELL MYELOMA
     Route: 048
     Dates: start: 201203, end: 2012
  2. VALACYCLOVIR HCL (VALACICLOVIR HYDROCHLORIDE) (TABLETS) [Concomitant]
  3. GABAPENTIN (GABAPENTIN) (CAPSULES) [Concomitant]
  4. SULFAMETHOXAZOLE TEMP DS (BACTRIM) (TABLETS) [Concomitant]
  5. LEVOTHYROXINE (LEVOTHYROXINE) (TABLETS) [Concomitant]
  6. NYSTATIN (NYSTATIN) (SUSPENSION) [Concomitant]
  7. CALCIUM (CALCIUM) (CHEWABLE TABLET) [Concomitant]
  8. PROAIR HFA (SALBUTAMOL SULFATE) (INHALANT) [Concomitant]
  9. ASPIRIN (ACETYLSALICYLIC ACID) (TABLETS) [Concomitant]
  10. VITAMIN B COMPLEX - VITAMIN C (BEMINAL WITH C FORTIS) (CAPSULES) [Concomitant]

REACTIONS (1)
  - Thrombosis [None]
